FAERS Safety Report 24084481 (Version 1)
Quarter: 2024Q3

REPORT INFORMATION
  Report Type: Spontaneous
  Country: US (occurrence: None)
  Receive Date: 20240711
  Receipt Date: 20240711
  Transmission Date: 20241017
  Serious: Yes (Other)
  Sender: Public
  Company Number: None

PATIENT
  Age: 47 Year
  Sex: Female
  Weight: 84.9 kg

DRUGS (5)
  1. DULAGLUTIDE [Suspect]
     Active Substance: DULAGLUTIDE
     Indication: Diabetic retinopathy
     Dosage: OTHER FREQUENCY : WEEKLY;?
     Route: 058
     Dates: start: 20210420, end: 20210427
  2. ATORVASTATIN [Concomitant]
     Active Substance: ATORVASTATIN
     Dates: start: 20211108
  3. INVOKANA [Concomitant]
     Active Substance: CANAGLIFLOZIN
     Dates: start: 20220420
  4. Metformin 2 g [Concomitant]
     Dates: start: 20211108
  5. Lisinopril-HCTZ 20-12.5 mg [Concomitant]
     Dates: start: 20211108

REACTIONS (4)
  - Fatigue [None]
  - Headache [None]
  - Nausea [None]
  - Vomiting [None]

NARRATIVE: CASE EVENT DATE: 20220420
